FAERS Safety Report 4581485-7 (Version None)
Quarter: 2005Q1

REPORT INFORMATION
  Report Type: 
  Country: None (occurrence: None)
  Receive Date: 20050214
  Receipt Date: 20041101
  Transmission Date: 20050727
  Serious: No
  Sender: FDA-Public Use
  Company Number: US-GLAXOSMITHKLINE-A0532060A

PATIENT
  Sex: Female

DRUGS (4)
  1. LAMICTAL [Suspect]
     Indication: BIPOLAR DISORDER
     Dosage: 25MG PER DAY
     Route: 048
     Dates: start: 20041020, end: 20041030
  2. METFORMIN HCL [Concomitant]
  3. AMARYL [Concomitant]
  4. ZESTRIL [Concomitant]

REACTIONS (2)
  - MIGRAINE [None]
  - NAUSEA [None]
